FAERS Safety Report 7768217-6 (Version None)
Quarter: 2011Q3

REPORT INFORMATION
  Report Type: 
  Country: None (occurrence: None)
  Receive Date: 20110922
  Receipt Date: 20110922
  Transmission Date: 20111222
  Serious: Yes (Other)
  Sender: FDA-Public Use
  Company Number: None

PATIENT
  Age: 21 Year
  Sex: Male
  Weight: 74.842 kg

DRUGS (1)
  1. CYMBALTA [Suspect]
     Indication: ANXIETY DISORDER
     Dates: start: 20101114, end: 20110921

REACTIONS (4)
  - STRESS [None]
  - BLOOD TESTOSTERONE DECREASED [None]
  - LIBIDO DECREASED [None]
  - ALOPECIA [None]
